FAERS Safety Report 9671444 (Version 3)
Quarter: 2014Q1

REPORT INFORMATION
  Report Type: Spontaneous
  Country: US (occurrence: US)
  Receive Date: 20131106
  Receipt Date: 20140306
  Transmission Date: 20141002
  Serious: Yes (Death, Hospitalization, Other)
  Sender: FDA-Public Use
  Company Number: US-PFIZER INC-2013313689

PATIENT
  Age: 63 Year
  Sex: Female

DRUGS (4)
  1. AROMASIN [Suspect]
     Indication: BREAST CANCER METASTATIC
     Dosage: 25 MG, DAILY
     Route: 048
     Dates: start: 20130731
  2. AROMASIN [Suspect]
     Dosage: 25 MG, DAILY
     Route: 048
     Dates: start: 20130923, end: 20131014
  3. TAXOTERE [Suspect]
     Indication: BREAST CANCER METASTATIC
     Dosage: 60 MG, UNK
     Route: 042
     Dates: start: 20130923
  4. TAXOTERE [Suspect]
     Dosage: UNK
     Route: 042
     Dates: start: 20131014

REACTIONS (13)
  - Infection [Fatal]
  - Neutropenia [Fatal]
  - Sepsis [Fatal]
  - Gastrointestinal haemorrhage [Unknown]
  - Malignant pleural effusion [Unknown]
  - Rectal haemorrhage [Unknown]
  - Pneumonia [Unknown]
  - Dyspnoea [Unknown]
  - Hypotension [Unknown]
  - Nausea [Unknown]
  - Platelet count decreased [Unknown]
  - Disease progression [Unknown]
  - Breast cancer [Unknown]
